FAERS Safety Report 9484661 (Version 1)
Quarter: 2013Q3

REPORT INFORMATION
  Report Type: Spontaneous
  Country: US (occurrence: US)
  Receive Date: 20130828
  Receipt Date: 20130828
  Transmission Date: 20140515
  Serious: Yes (Death)
  Sender: FDA-Public Use
  Company Number: US-AMGEN-KDL434403

PATIENT
  Sex: Female

DRUGS (8)
  1. ENBREL [Suspect]
     Indication: PRODUCT USED FOR UNKNOWN INDICATION
     Dosage: 50 MG, QWK
     Route: 058
  2. DULOXETINE [Concomitant]
     Dosage: 20 MG, UNK
  3. LORAZEPAM [Concomitant]
     Dosage: .5 MG, UNK
  4. ZOLMITRIPTAN [Concomitant]
     Dosage: 2.5 MG, UNK
  5. LAMOTRIGINE [Concomitant]
     Dosage: 25 MG, UNK
  6. SUMATRIPTAN [Concomitant]
     Dosage: 25 MG, UNK
  7. FLUOXETINE HYDROCHLORIDE [Concomitant]
     Dosage: 10 MG, UNK
  8. ADDERALL [Concomitant]
     Dosage: 5 MG, UNK

REACTIONS (1)
  - Death [Fatal]
